FAERS Safety Report 4359682-5 (Version None)
Quarter: 2004Q2

REPORT INFORMATION
  Report Type: 
  Country: None (occurrence: None)
  Receive Date: 20040517
  Receipt Date: 20040517
  Transmission Date: 20050107
  Serious: Yes (Life-Threatening, Hospitalization, Disabling)
  Sender: FDA-Public Use
  Company Number: None

PATIENT
  Sex: Female
  Weight: 68.0396 kg

DRUGS (1)
  1. TETRACYCLINE [Suspect]
     Indication: ACNE
     Dosage: 1 PER DAY
     Dates: start: 19850101, end: 20030601

REACTIONS (2)
  - FUNGAL SEPSIS [None]
  - SYSTEMIC CANDIDA [None]
